FAERS Safety Report 6140424-8 (Version None)
Quarter: 2009Q1

REPORT INFORMATION
  Report Type: 
  Country: None (occurrence: None)
  Receive Date: 20090331
  Receipt Date: 20090325
  Transmission Date: 20090719
  Serious: Yes (Disabling, Other)
  Sender: FDA-Public Use
  Company Number: 187447USA

PATIENT
  Age: 20 Year
  Sex: Female

DRUGS (2)
  1. CLARAVIS [Suspect]
     Dosage: 80 MG (40 MG,2 IN 1D), ORAL
     Route: 048
     Dates: start: 20081105, end: 20090209
  2. ISOTRETINOIN [Suspect]
     Dosage: 80 MG (40 MG, 2 IN 1 D), ORAL
     Route: 048
     Dates: start: 20080908

REACTIONS (4)
  - ABORTION INDUCED [None]
  - DRUG EXPOSURE DURING PREGNANCY [None]
  - UNEVALUABLE EVENT [None]
  - UNINTENDED PREGNANCY [None]
